FAERS Safety Report 8173734-3 (Version None)
Quarter: 2012Q1

REPORT INFORMATION
  Report Type: 
  Country: None (occurrence: None)
  Receive Date: 20120227
  Receipt Date: 20120217
  Transmission Date: 20120608
  Serious: Yes (Death, Hospitalization)
  Sender: FDA-Public Use
  Company Number: 130264

PATIENT
  Sex: Male

DRUGS (1)
  1. ACETYLCYSTEINE [Suspect]
     Indication: LUNG DISORDER
     Dosage: UNK
     Dates: start: 20110101

REACTIONS (5)
  - RESPIRATORY ARREST [None]
  - PRODUCT QUALITY ISSUE [None]
  - PULMONARY OEDEMA [None]
  - HAEMOPTYSIS [None]
  - RESPIRATORY TRACT IRRITATION [None]
